FAERS Safety Report 16998658 (Version 1)
Quarter: 2019Q4

REPORT INFORMATION
  Report Type: Spontaneous
  Country: US (occurrence: US)
  Receive Date: 20191105
  Receipt Date: 20191105
  Transmission Date: 20200122
  Serious: Yes (Death)
  Sender: FDA-Public Use
  Company Number: None

PATIENT
  Age: 78 Year
  Sex: Male

DRUGS (20)
  1. FISH OIL 1000MG CAPSULE [Concomitant]
  2. NITROGLYCERIN 0.6MG/HR PATCH [Concomitant]
  3. RANEXA 1000MG ER TABLET [Concomitant]
  4. HYDRALAZINE 10MG [Concomitant]
     Active Substance: HYDRALAZINE HYDROCHLORIDE
  5. MICARDIS 40MG [Concomitant]
  6. COQ10 30MG [Concomitant]
  7. FUROSEMIDE 40MG [Concomitant]
     Active Substance: FUROSEMIDE
  8. ELIQUIS [Concomitant]
     Active Substance: APIXABAN
  9. ASPIRIN 81MG CHEWABLE [Concomitant]
  10. LANTUS SOLOSTAR [Concomitant]
     Active Substance: INSULIN GLARGINE
  11. LIPITOR [Concomitant]
     Active Substance: ATORVASTATIN CALCIUM
  12. MAGNESIUM 200MG [Concomitant]
  13. APIDRA SOLOSTAR [Concomitant]
     Active Substance: INSULIN GLULISINE
  14. CENTRUM SILVER ULTRA MENS [Concomitant]
  15. HYDROCHLOROTHIAZIDE 25MG [Concomitant]
     Active Substance: HYDROCHLOROTHIAZIDE
  16. POTASSIUM CHLORIDE 40MEQ/15ML [Concomitant]
  17. VITAMIN D3 5000 UNIT CAPSULE [Concomitant]
  18. PRALUENT [Suspect]
     Active Substance: ALIROCUMAB
     Indication: LIPIDS INCREASED
     Dosage: ?          OTHER FREQUENCY:EVERY 2 WEEKS;?
     Route: 058
     Dates: start: 20160301, end: 20190827
  19. BYSTOLIC [Concomitant]
     Active Substance: NEBIVOLOL HYDROCHLORIDE
  20. LEXAPRO [Concomitant]
     Active Substance: ESCITALOPRAM OXALATE

REACTIONS (1)
  - Hospitalisation [None]
